FAERS Safety Report 6252090-1 (Version None)
Quarter: 2009Q2

REPORT INFORMATION
  Report Type: 
  Country: None (occurrence: None)
  Receive Date: 20090630
  Receipt Date: 20070822
  Transmission Date: 20091009
  Serious: Yes (Death)
  Sender: FDA-Public Use
  Company Number: US-ROCHE-638916

PATIENT
  Sex: Male

DRUGS (5)
  1. ENFUVIRTIDE [Suspect]
     Route: 065
     Dates: start: 20050223, end: 20070710
  2. REYATAZ [Concomitant]
     Indication: ANTIRETROVIRAL THERAPY
     Dates: start: 20050223, end: 20070807
  3. ZERIT [Concomitant]
     Indication: ANTIRETROVIRAL THERAPY
     Dates: start: 20050223, end: 20070807
  4. VIREAD [Concomitant]
     Indication: ANTIRETROVIRAL THERAPY
     Dates: start: 20051122, end: 20070807
  5. DIFLUCAN [Concomitant]
     Indication: ANTIBIOTIC THERAPY
     Dates: start: 20060508, end: 20070807

REACTIONS (1)
  - DEATH [None]
